FAERS Safety Report 6727145-5 (Version None)
Quarter: 2010Q2

REPORT INFORMATION
  Report Type: 
  Country: None (occurrence: None)
  Receive Date: 20100512
  Receipt Date: 20100126
  Transmission Date: 20101027
  Serious: No
  Sender: FDA-Public Use
  Company Number: 1000011478

PATIENT
  Age: 59 Year
  Sex: Female

DRUGS (9)
  1. SAVELLA [Suspect]
     Indication: FIBROMYALGIA
     Dosage: 12.5 MG (12.5 MG,1 IN 1 D), ORAL; 25 MG (12.5 MG,2 IN 1 D),ORMUCOSAL USE;50 MG (25 MG,2 IN 1 D),ORAL
     Route: 048
     Dates: start: 20091217, end: 20091217
  2. SAVELLA [Suspect]
     Indication: FIBROMYALGIA
     Dosage: 12.5 MG (12.5 MG,1 IN 1 D), ORAL; 25 MG (12.5 MG,2 IN 1 D),ORMUCOSAL USE;50 MG (25 MG,2 IN 1 D),ORAL
     Route: 048
     Dates: start: 20091218, end: 20091223
  3. SAVELLA [Suspect]
     Indication: FIBROMYALGIA
     Dosage: 12.5 MG (12.5 MG,1 IN 1 D), ORAL; 25 MG (12.5 MG,2 IN 1 D),ORMUCOSAL USE;50 MG (25 MG,2 IN 1 D),ORAL
     Route: 048
     Dates: start: 20091220, end: 20091223
  4. SAVELLA [Suspect]
     Indication: FIBROMYALGIA
     Dosage: 100 MG (50 MG, 2 IN 1 D), ORAL
     Route: 048
     Dates: start: 20091224, end: 20100122
  5. GABAPENTIN [Concomitant]
  6. FLEXERIL [Concomitant]
  7. AMBIEN [Concomitant]
  8. CALCIUM [Concomitant]
  9. VITAMIN D [Concomitant]

REACTIONS (1)
  - LIP SWELLING [None]
